FAERS Safety Report 9091152 (Version 1)
Quarter: 2013Q1

REPORT INFORMATION
  Report Type: Report from Study
  Country: US (occurrence: US)
  Receive Date: 20130201
  Receipt Date: 20130201
  Transmission Date: 20140127
  Serious: No
  Sender: FDA-Public Use
  Company Number: US-ABBOTT-12P-163-1019153-00

PATIENT
  Age: 46 Year
  Sex: Male

DRUGS (7)
  1. HUMIRA [Suspect]
     Indication: RHEUMATOID ARTHRITIS
  2. METHOTREXATE [Concomitant]
     Indication: RHEUMATOID ARTHRITIS
     Dosage: 5 MG 6/WEEKLY
  3. PREDNISONE [Concomitant]
     Indication: INFLAMMATION
     Dosage: 5 MG 2/DAY
  4. FLONASE [Concomitant]
     Indication: ALLERGIC SINUSITIS
     Dosage: NASAL SPRAY, 2 SQUIRTS DAILY
  5. ZYRTEC [Concomitant]
     Indication: ALLERGIC SINUSITIS
     Dosage: 10 MG 1/DAY
  6. SINGULAIR [Concomitant]
     Indication: HYPERSENSITIVITY
     Dosage: 10 MG 1/DAY
  7. FLUOCINONIDE [Concomitant]
     Indication: PRODUCT USED FOR UNKNOWN INDICATION
     Dosage: APPLY FOR 15 MIN, WIPE OFF BEFORE INJECTION

REACTIONS (3)
  - Injection site pain [Recovered/Resolved]
  - Injection site pruritus [Recovered/Resolved]
  - Injection site swelling [Recovered/Resolved]
